FAERS Safety Report 24216761 (Version 1)
Quarter: 2024Q3

REPORT INFORMATION
  Report Type: Spontaneous
  Country: CA (occurrence: CA)
  Receive Date: 20240816
  Receipt Date: 20240816
  Transmission Date: 20241017
  Serious: Yes (Death, Hospitalization)
  Sender: TEVA
  Company Number: CA-TEVA-VS-3232391

PATIENT
  Age: 16 Year
  Sex: Female
  Weight: 110 kg

DRUGS (18)
  1. MYCOPHENOLATE MOFETIL [Suspect]
     Active Substance: MYCOPHENOLATE MOFETIL
     Indication: Product used for unknown indication
     Route: 065
  2. FENTANYL [Concomitant]
     Active Substance: FENTANYL\FENTANYL CITRATE
     Indication: Product used for unknown indication
     Route: 065
  3. PENICILLIN V POTASSIUM [Concomitant]
     Active Substance: PENICILLIN V POTASSIUM
     Indication: Product used for unknown indication
     Route: 048
  4. ALBUMIN (HUMAN) [Concomitant]
     Active Substance: ALBUMIN HUMAN
     Indication: Product used for unknown indication
     Route: 065
  5. PANTOPRAZOLE MAGNESIUM [Concomitant]
     Active Substance: PANTOPRAZOLE MAGNESIUM
     Indication: Product used for unknown indication
     Route: 048
  6. BUDESONIDE [Concomitant]
     Active Substance: BUDESONIDE
     Indication: Product used for unknown indication
     Route: 065
  7. DEXAMETHASONE SODIUM PHOSPHATE [Concomitant]
     Active Substance: DEXAMETHASONE PHOSPHATE\DEXAMETHASONE SODIUM PHOSPHATE
     Indication: Product used for unknown indication
     Route: 065
  8. CYCLOSPORINE [Concomitant]
     Active Substance: CYCLOSPORINE
     Indication: Product used for unknown indication
     Dosage: 1.0 GTT
     Route: 047
  9. PREDNISONE [Concomitant]
     Active Substance: PREDNISONE
     Indication: Product used for unknown indication
     Route: 048
  10. PREDNISONE [Concomitant]
     Active Substance: PREDNISONE
     Indication: Product used for unknown indication
     Route: 065
  11. HYDROMORPHONE [Concomitant]
     Active Substance: HYDROMORPHONE
     Indication: Product used for unknown indication
     Route: 065
  12. ISAVUCONAZOLE [Concomitant]
     Active Substance: ISAVUCONAZOLE
     Indication: Product used for unknown indication
     Route: 065
  13. RUXOLITINIB PHOSPHATE [Concomitant]
     Active Substance: RUXOLITINIB PHOSPHATE
     Indication: Product used for unknown indication
     Route: 048
  14. NOREPINEPHRINE [Concomitant]
     Active Substance: NOREPINEPHRINE\NOREPINEPHRINE BITARTRATE
     Indication: Product used for unknown indication
     Route: 065
  15. RUXOLITINIB [Suspect]
     Active Substance: RUXOLITINIB
     Indication: Product used for unknown indication
     Route: 065
  16. CHOLECALCIFEROL [Concomitant]
     Active Substance: CHOLECALCIFEROL
     Indication: Product used for unknown indication
     Route: 048
  17. AMPHOTERICIN B [Concomitant]
     Active Substance: AMPHOTERICIN B
     Indication: Product used for unknown indication
     Route: 065
  18. MEROPENEM [Concomitant]
     Active Substance: MEROPENEM
     Indication: Product used for unknown indication
     Dosage: DOSE FORM : POWDER FOR SOLUTION INTRAVENOUS
     Route: 065

REACTIONS (1)
  - Death [Fatal]
